FAERS Safety Report 5898837-5 (Version None)
Quarter: 2008Q3

REPORT INFORMATION
  Report Type: 
  Country: None (occurrence: None)
  Receive Date: 20080925
  Receipt Date: 20080912
  Transmission Date: 20090109
  Serious: No
  Sender: FDA-Public Use
  Company Number: A0738869A

PATIENT
  Age: 19 Year
  Sex: Male

DRUGS (1)
  1. WELLBUTRIN XL [Suspect]
     Indication: DEPRESSION
     Dosage: 150MG PER DAY
     Route: 048
     Dates: start: 20080701, end: 20080710

REACTIONS (5)
  - DYSPNOEA [None]
  - FEELING ABNORMAL [None]
  - HEART RATE INCREASED [None]
  - IRRITABILITY [None]
  - NAUSEA [None]
